FAERS Safety Report 5113360-3 (Version None)
Quarter: 2006Q3

REPORT INFORMATION
  Report Type: 
  Country: None (occurrence: None)
  Receive Date: 20060920
  Receipt Date: 20060908
  Transmission Date: 20061208
  Serious: Yes (Hospitalization)
  Sender: FDA-Public Use
  Company Number: US-2006-026141

PATIENT
  Age: 75 Year
  Sex: Female

DRUGS (1)
  1. BETASERON [Suspect]
     Indication: RELAPSING-REMITTING MULTIPLE SCLEROSIS
     Dosage: 2 MIU, 2X/WEEK, SUBCUTANEOUS
     Route: 058
     Dates: start: 20060829, end: 20060901

REACTIONS (2)
  - ABNORMAL BEHAVIOUR [None]
  - BLOOD SODIUM DECREASED [None]
